FAERS Safety Report 5465580-6 (Version None)
Quarter: 2007Q3

REPORT INFORMATION
  Report Type: 
  Country: None (occurrence: None)
  Receive Date: 20070919
  Receipt Date: 20070903
  Transmission Date: 20080115
  Serious: Yes (Life-Threatening)
  Sender: FDA-Public Use
  Company Number: 2007RR-09833

PATIENT
  Age: 69 Year
  Sex: Male

DRUGS (4)
  1. ACYCLOVIR [Suspect]
     Indication: HERPES ZOSTER
     Dosage: 800 MG, ORAL
     Route: 048
     Dates: start: 20070815, end: 20070815
  2. SYMBICORT (BUDESONIDE, FORMETEROL) [Concomitant]
  3. THEOPHYLLINE [Concomitant]
  4. TIOTROPIUM (TIOTROPIUM BROMIDE) [Concomitant]

REACTIONS (4)
  - BRONCHOSPASM [None]
  - HYPERSENSITIVITY [None]
  - HYPOTENSION [None]
  - TACHYCARDIA [None]
